FAERS Safety Report 13486644 (Version 1)
Quarter: 2017Q2

REPORT INFORMATION
  Report Type: Spontaneous
  Country: US (occurrence: US)
  Receive Date: 20170426
  Receipt Date: 20170426
  Transmission Date: 20170830
  Serious: Yes (Other)
  Sender: FDA-Public Use
  Company Number: US-LUPIN PHARMACEUTICALS INC.-2017-01961

PATIENT
  Age: 19 Year
  Sex: Female
  Weight: 91 kg

DRUGS (1)
  1. NORETHINDRONE TABLETS USP 0.35 MG [Suspect]
     Active Substance: NORETHINDRONE
     Indication: ORAL CONTRACEPTION
     Dosage: 0.35 MG, QD
     Route: 048
     Dates: start: 201612

REACTIONS (2)
  - Menstrual disorder [Not Recovered/Not Resolved]
  - Lower limb fracture [Recovered/Resolved]

NARRATIVE: CASE EVENT DATE: 20170317
